FAERS Safety Report 5748383-4 (Version None)
Quarter: 2008Q2

REPORT INFORMATION
  Report Type: 
  Country: None (occurrence: None)
  Receive Date: 20080523
  Receipt Date: 20080512
  Transmission Date: 20081010
  Serious: Yes (Other)
  Sender: FDA-Public Use
  Company Number: US-PFIZER INC-2008031320

PATIENT
  Sex: Female
  Weight: 70.3 kg

DRUGS (10)
  1. LYRICA [Suspect]
     Indication: FIBROMYALGIA
     Route: 048
     Dates: start: 20080312, end: 20080329
  2. LYRICA [Suspect]
     Indication: DIABETIC NEUROPATHY
  3. AVANDIA [Concomitant]
  4. GLYBURIDE [Concomitant]
  5. QUINAPRIL [Concomitant]
  6. LIPITOR [Concomitant]
  7. AMITRIPTYLINE HCL [Concomitant]
  8. OMEPRAZOLE [Concomitant]
  9. EFFEXOR [Concomitant]
  10. ALL OTHER THERAPEUTIC PRODUCTS [Concomitant]

REACTIONS (4)
  - ERYTHEMA [None]
  - ERYTHEMA MULTIFORME [None]
  - OEDEMA PERIPHERAL [None]
  - WEIGHT INCREASED [None]
